FAERS Safety Report 8826881 (Version 2)
Quarter: 2012Q4

REPORT INFORMATION
  Report Type: 
  Country: IT (occurrence: IT)
  Receive Date: 20121005
  Receipt Date: 20121113
  Transmission Date: 20130627
  Serious: Yes (Hospitalization, Other)
  Sender: FDA-Public Use
  Company Number: IT-ALEXION PHARMACEUTICALS INC.-A201201880

PATIENT
  Age: 12 Year
  Sex: Male

DRUGS (5)
  1. SOLIRIS 300MG [Suspect]
     Indication: HAEMOLYTIC URAEMIC SYNDROME
     Dosage: 900 mg, qw
     Route: 042
     Dates: start: 20120218
  2. SOLIRIS 300MG [Suspect]
     Dosage: 1200 mg, q2w
     Route: 042
  3. ANTRA [Concomitant]
     Dosage: 20 mg, qd
     Route: 048
     Dates: start: 20120218, end: 20120830
  4. ARANESP [Concomitant]
     Dosage: UNK 30 vials
     Route: 058
  5. DEDIOL [Concomitant]
     Dosage: 6 drops, UNK
     Route: 048
     Dates: start: 20120218, end: 20120830

REACTIONS (4)
  - Purpura [Recovered/Resolved]
  - Platelet count decreased [Unknown]
  - Petechiae [Recovered/Resolved]
  - Haemoglobin decreased [Unknown]
